FAERS Safety Report 5049309-1 (Version None)
Quarter: 2006Q3

REPORT INFORMATION
  Report Type: 
  Country: None (occurrence: None)
  Receive Date: 20060706
  Receipt Date: 20050311
  Transmission Date: 20061208
  Serious: Yes (Hospitalization, Other)
  Sender: FDA-Public Use
  Company Number: FRWYE881429JUN06

PATIENT
  Age: 49 Year
  Sex: Female

DRUGS (2)
  1. SIROLIMUS                                  (SIROLIMUS, SOLUTION) [Suspect]
     Indication: RENAL TRANSPLANT
     Dosage: 8 MG 1X PER 1 DAY ORAL
     Route: 048
     Dates: start: 20020915, end: 20021017
  2. SIROLIMUS                                  (SIROLIMUS, SOLUTION) [Suspect]
     Indication: RENAL TRANSPLANT
     Dosage: 8 MG 1X PER 1 DAY ORAL
     Route: 048
     Dates: start: 20021020, end: 20021023

REACTIONS (1)
  - IMMUNOSUPPRESSANT DRUG LEVEL INCREASED [None]
